FAERS Safety Report 21663935 (Version 1)
Quarter: 2022Q4

REPORT INFORMATION
  Report Type: Spontaneous
  Country: US (occurrence: None)
  Receive Date: 20221129
  Receipt Date: 20221129
  Transmission Date: 20230112
  Serious: No
  Sender: FDA-Public Use
  Company Number: None

PATIENT
  Sex: Male
  Weight: 90.72 kg

DRUGS (4)
  1. CAPECITABINE [Suspect]
     Active Substance: CAPECITABINE
     Indication: Rectal cancer
     Dosage: FREQUENCY : TWICE A DAY;?OTHER ROUTE : ORAL-DAY 1-15, 7 D OFF;?
     Route: 050
     Dates: start: 20220811
  2. IBUPROFEN [Concomitant]
     Active Substance: IBUPROFEN
  3. TADALAFIL [Concomitant]
     Active Substance: TADALAFIL
  4. VITAMIN D3 [Concomitant]
     Active Substance: CHOLECALCIFEROL

REACTIONS (2)
  - Abdominal infection [None]
  - Therapy interrupted [None]
